FAERS Safety Report 11239456 (Version 2)
Quarter: 2015Q3

REPORT INFORMATION
  Report Type: Report from Study
  Country: CA (occurrence: CA)
  Receive Date: 20150706
  Receipt Date: 20150723
  Transmission Date: 20151125
  Serious: Yes (Hospitalization, Other)
  Sender: FDA-Public Use
  Company Number: CA-ROCHE-1153652

PATIENT
  Age: 68 Year
  Sex: Female
  Weight: 50.85 kg

DRUGS (8)
  1. CANDESARTAN [Concomitant]
     Active Substance: CANDESARTAN
     Route: 065
  2. CELEBREX [Concomitant]
     Active Substance: CELECOXIB
  3. TYLENOL [Concomitant]
     Active Substance: ACETAMINOPHEN
     Route: 048
     Dates: start: 20121105
  4. DIPHENHYDRAMINE HCL [Concomitant]
     Active Substance: DIPHENHYDRAMINE HYDROCHLORIDE
     Indication: PREMEDICATION
     Route: 048
     Dates: start: 20121105
  5. RITUXAN [Suspect]
     Active Substance: RITUXIMAB
     Indication: RHEUMATOID ARTHRITIS
     Route: 042
     Dates: start: 20121105
  6. PREVACID [Concomitant]
     Active Substance: LANSOPRAZOLE
  7. METHYLPREDNISOLONE. [Concomitant]
     Active Substance: METHYLPREDNISOLONE
     Route: 042
     Dates: start: 20121105
  8. ATACAND [Concomitant]
     Active Substance: CANDESARTAN CILEXETIL

REACTIONS (13)
  - Hypertension [Unknown]
  - Cardiac flutter [Unknown]
  - Blood pressure increased [Unknown]
  - Headache [Recovered/Resolved]
  - Dry mouth [Unknown]
  - Pain [Unknown]
  - Arthropathy [Unknown]
  - Nausea [Recovered/Resolved]
  - Hyponatraemia [Recovered/Resolved]
  - Skin plaque [Recovered/Resolved]
  - Infusion related reaction [Unknown]
  - Delirium [Recovered/Resolved]
  - Oxygen saturation decreased [Unknown]

NARRATIVE: CASE EVENT DATE: 20121105
